FAERS Safety Report 13173965 (Version 1)
Quarter: 2017Q1

REPORT INFORMATION
  Report Type: Spontaneous
  Country: US (occurrence: US)
  Receive Date: 20170131
  Receipt Date: 20170131
  Transmission Date: 20170509
  Serious: Yes (Hospitalization)
  Sender: FDA-Public Use
  Company Number: None

PATIENT
  Age: 23 Year
  Sex: Male
  Weight: 62.2 kg

DRUGS (1)
  1. DOXYCYCLINE. [Suspect]
     Active Substance: DOXYCYCLINE
     Indication: DRUG THERAPY
     Route: 048
     Dates: start: 20160731, end: 20160803

REACTIONS (5)
  - Gastrooesophageal reflux disease [None]
  - Oesophagitis [None]
  - Weight decreased [None]
  - Oesophageal ulcer [None]
  - Dysphagia [None]

NARRATIVE: CASE EVENT DATE: 20160803
